FAERS Safety Report 7478650-8 (Version None)
Quarter: 2011Q2

REPORT INFORMATION
  Report Type: 
  Country: None (occurrence: None)
  Receive Date: 20110511
  Receipt Date: 20110511
  Transmission Date: 20111010
  Serious: No
  Sender: FDA-Public Use
  Company Number: None

PATIENT
  Age: 67 Year
  Sex: Female
  Weight: 129.2752 kg

DRUGS (1)
  1. POTASSIUM CHLORIDE [Suspect]
     Indication: MINERAL SUPPLEMENTATION
     Dosage: 1 TAB 2X DAY PO
     Route: 048
     Dates: start: 20110410, end: 20110415

REACTIONS (3)
  - PAIN [None]
  - FLATULENCE [None]
  - PRODUCT SUBSTITUTION ISSUE [None]
